FAERS Safety Report 4732589-7 (Version None)
Quarter: 2005Q3

REPORT INFORMATION
  Report Type: 
  Country: None (occurrence: None)
  Receive Date: 20050803
  Receipt Date: 20050722
  Transmission Date: 20060218
  Serious: Yes (Hospitalization, Other)
  Sender: FDA-Public Use
  Company Number: GB-JNJFOC-20050704707

PATIENT
  Sex: Female
  Weight: 89 kg

DRUGS (6)
  1. REMICADE [Suspect]
     Indication: RHEUMATOID ARTHRITIS
     Route: 042
  2. METHOTREXATE [Concomitant]
  3. PREDNISOLONE [Concomitant]
  4. NEORAL [Concomitant]
  5. INDOMETHACIN [Concomitant]
  6. DIHYDROCODEINE [Concomitant]

REACTIONS (3)
  - CHOLELITHIASIS [None]
  - HERNIA [None]
  - INTESTINAL STOMA [None]
